FAERS Safety Report 4761416-7 (Version None)
Quarter: 2005Q3

REPORT INFORMATION
  Report Type: 
  Country: None (occurrence: None)
  Receive Date: 20050901
  Receipt Date: 20050819
  Transmission Date: 20060218
  Serious: Yes (Other)
  Sender: FDA-Public Use
  Company Number: 2005118641

PATIENT
  Sex: 0

DRUGS (3)
  1. CAMPTOSAR [Suspect]
     Indication: ILL-DEFINED DISORDER
  2. FLUOROURACIL [Suspect]
     Indication: ILL-DEFINED DISORDER
  3. LEUCOVORIN CALCIUM [Suspect]
     Indication: ILL-DEFINED DISORDER

REACTIONS (1)
  - PSYCHOTIC DISORDER [None]
